FAERS Safety Report 7232052-8 (Version None)
Quarter: 2011Q1

REPORT INFORMATION
  Report Type: 
  Country: None (occurrence: None)
  Receive Date: 20110118
  Receipt Date: 20110112
  Transmission Date: 20110831
  Serious: Yes (Hospitalization)
  Sender: FDA-Public Use
  Company Number: JP-BRISTOL-MYERS SQUIBB COMPANY-15429277

PATIENT
  Age: 80 Year
  Sex: Female
  Weight: 41 kg

DRUGS (21)
  1. ASPIRIN [Concomitant]
  2. BONOTEO [Concomitant]
  3. PREDONINE [Concomitant]
     Indication: RHEUMATOID ARTHRITIS
     Route: 048
  4. CYTOTEC [Concomitant]
  5. STROCAIN [Concomitant]
  6. ORENCIA [Suspect]
     Dosage: LAST DOSE RECEIVED ON 22DEC10
     Route: 042
     Dates: start: 20101201
  7. MIZORIBINE [Concomitant]
  8. NEUER [Concomitant]
  9. MYSLEE [Concomitant]
  10. AMLODIPINE [Concomitant]
  11. METHYCOBAL [Concomitant]
     Indication: RHEUMATOID ARTHRITIS
  12. ACTOS [Concomitant]
  13. LORCAM [Concomitant]
     Indication: RHEUMATOID ARTHRITIS
  14. VOLTAREN [Concomitant]
     Indication: RHEUMATOID ARTHRITIS
     Dosage: VOLATREN SUPPO
  15. LASIX [Concomitant]
  16. CRESTOR [Concomitant]
  17. GLUFAST [Concomitant]
  18. SALAZOSULFAPYRIDINE [Concomitant]
  19. PARIET [Concomitant]
  20. BLOPRESS [Concomitant]
  21. SODIUM ALGINATE [Concomitant]

REACTIONS (1)
  - ANAEMIA [None]
